FAERS Safety Report 5592635-8 (Version None)
Quarter: 2007Q4

REPORT INFORMATION
  Report Type: 
  Country: None (occurrence: None)
  Receive Date: 20071218
  Receipt Date: 20070702
  Transmission Date: 20080405
  Serious: Yes (Hospitalization, Other)
  Sender: FDA-Public Use
  Company Number: 2004114412

PATIENT
  Age: 67 Year
  Sex: Female
  Weight: 81.6 kg

DRUGS (2)
  1. BEXTRA [Suspect]
     Indication: BACK PAIN
     Dosage: 20 MG (20 MG, 1 IN 1 D), ORAL
     Route: 048
     Dates: start: 20040414, end: 20040419
  2. PREMARIN [Concomitant]

REACTIONS (1)
  - MYOCARDIAL INFARCTION [None]
